FAERS Safety Report 23067410 (Version 1)
Quarter: 2023Q4

REPORT INFORMATION
  Report Type: Spontaneous
  Country: SE (occurrence: SE)
  Receive Date: 20231016
  Receipt Date: 20231016
  Transmission Date: 20240109
  Serious: Yes (Life-Threatening, Disabling)
  Sender: FDA-Public Use
  Company Number: None

PATIENT
  Age: 32 Year
  Sex: Male
  Weight: 92 kg

DRUGS (4)
  1. METHYLPHENIDATE HYDROCHLORIDE [Suspect]
     Active Substance: METHYLPHENIDATE HYDROCHLORIDE
     Indication: Attention deficit hyperactivity disorder
     Dosage: 2 TABLETTER 1 G?NG/DAG
     Route: 048
     Dates: start: 20220701, end: 20220709
  2. METHYLPHENIDATE HYDROCHLORIDE [Suspect]
     Active Substance: METHYLPHENIDATE HYDROCHLORIDE
     Indication: Attention deficit hyperactivity disorder
     Dosage: 18.000MG QD
     Route: 065
     Dates: start: 20220630, end: 20220707
  3. CETIRIZIN ABECE [Concomitant]
     Indication: Product used for unknown indication
     Dosage: 10 MG 3 TABLETTER /DAG
     Route: 048
     Dates: start: 20220523, end: 20220920
  4. OMEPRAZOLE [Concomitant]
     Active Substance: OMEPRAZOLE
     Indication: Product used for unknown indication
     Dosage: 20 MG 1 TABLETT VID BEHOV (SURA UPPST?TNINGAR)
     Route: 048

REACTIONS (15)
  - Apathy [Recovered/Resolved with Sequelae]
  - Headache [Recovered/Resolved with Sequelae]
  - Vasoconstriction [Not Recovered/Not Resolved]
  - Emotional poverty [Recovered/Resolved with Sequelae]
  - Hypoaesthesia [Not Recovered/Not Resolved]
  - Muscle hypertrophy [Not Recovered/Not Resolved]
  - Genital hypoaesthesia [Not Recovered/Not Resolved]
  - Loss of libido [Not Recovered/Not Resolved]
  - Myalgia [Not Recovered/Not Resolved]
  - Premature ejaculation [Not Recovered/Not Resolved]
  - Cognitive disorder [Not Recovered/Not Resolved]
  - Testicular atrophy [Not Recovered/Not Resolved]
  - Suicidal ideation [Not Recovered/Not Resolved]
  - Spermatozoa abnormal [Not Recovered/Not Resolved]
  - Erectile dysfunction [Not Recovered/Not Resolved]

NARRATIVE: CASE EVENT DATE: 20220701
